FAERS Safety Report 10273395 (Version 1)
Quarter: 2014Q2

REPORT INFORMATION
  Report Type: Spontaneous
  Country: US (occurrence: None)
  Receive Date: 20140630
  Receipt Date: 20140630
  Transmission Date: 20141212
  Serious: Yes (Hospitalization)
  Sender: FDA-Public Use
  Company Number: None

PATIENT
  Age: 29 Year
  Sex: Male
  Weight: 105.24 kg

DRUGS (7)
  1. ANDROGEL [Suspect]
     Indication: BLOOD TESTOSTERONE DECREASED
     Dosage: 2 PUMPS DAILY TIWCE DAILY APPLIED TO MY ARMS
     Route: 061
     Dates: start: 20130430
  2. COGENTIN [Concomitant]
  3. DOXEPIN [Concomitant]
  4. THORAZINE [Concomitant]
  5. ZOLOFT [Concomitant]
  6. VALIUM [Concomitant]
  7. RITALIN [Concomitant]

REACTIONS (3)
  - Bone pain [None]
  - Back pain [None]
  - Pain in extremity [None]
